FAERS Safety Report 11455554 (Version 2)
Quarter: 2015Q4

REPORT INFORMATION
  Report Type: Spontaneous
  Country: MX (occurrence: MX)
  Receive Date: 20150903
  Receipt Date: 20151002
  Transmission Date: 20160304
  Serious: Yes (Life-Threatening, Hospitalization, Disabling, Other)
  Sender: FDA-Public Use
  Company Number: MX-ASTRAZENECA-2015SE84250

PATIENT
  Age: 58 Year
  Sex: Female
  Weight: 70.7 kg

DRUGS (4)
  1. AMLODIPINE W/ VALSARTAN [Concomitant]
     Dates: start: 201404
  2. ANASTROZOLE. [Suspect]
     Active Substance: ANASTROZOLE
     Indication: BREAST CANCER METASTATIC
     Dosage: EVERY 24 HOURS
     Route: 048
     Dates: start: 20150710
  3. DABIGATRAN [Concomitant]
     Active Substance: DABIGATRAN
     Dates: start: 201404
  4. VIDAGLIPTIN [Concomitant]
     Dates: start: 201406

REACTIONS (1)
  - Respiratory failure [Not Recovered/Not Resolved]

NARRATIVE: CASE EVENT DATE: 20150818
